FAERS Safety Report 9540898 (Version 1)
Quarter: 2013Q3

REPORT INFORMATION
  Report Type: Spontaneous
  Country: US (occurrence: US)
  Receive Date: 20130921
  Receipt Date: 20130921
  Transmission Date: 20140515
  Serious: Yes (Hospitalization)
  Sender: FDA-Public Use
  Company Number: US-ROCHE-1278749

PATIENT
  Age: 27 Year
  Sex: Male

DRUGS (2)
  1. NAPROXEN [Suspect]
     Indication: HEADACHE
     Route: 065
  2. ASPIRIN [Concomitant]
     Route: 065

REACTIONS (1)
  - Status asthmaticus [Unknown]
